FAERS Safety Report 4680932-X (Version None)
Quarter: 2005Q2

REPORT INFORMATION
  Report Type: 
  Country: None (occurrence: None)
  Receive Date: 20050603
  Receipt Date: 20050406
  Transmission Date: 20051028
  Serious: Yes (Disabling)
  Sender: FDA-Public Use
  Company Number: FR-BRISTOL-MYERS SQUIBB COMPANY-12943320

PATIENT
  Age: 53 Year
  Sex: Female
  Weight: 88 kg

DRUGS (9)
  1. ELISOR [Suspect]
     Indication: HYPERCHOLESTEROLAEMIA
     Route: 048
     Dates: start: 19990101, end: 20040501
  2. AMARYL [Concomitant]
     Dates: start: 20030101
  3. IMODIUM [Concomitant]
  4. TAREG [Concomitant]
     Dates: start: 20010101
  5. DIFFU-K [Concomitant]
     Dates: start: 20000101
  6. DEBRIDAT [Concomitant]
  7. DICETEL [Concomitant]
  8. METEOSPASMYL [Concomitant]
     Dates: start: 20000101
  9. EUPANTOL [Concomitant]
     Dates: start: 20030101

REACTIONS (3)
  - MUSCLE DISORDER [None]
  - MUSCULAR WEAKNESS [None]
  - MYALGIA [None]
